FAERS Safety Report 22140904 (Version 1)
Quarter: 2023Q1

REPORT INFORMATION
  Report Type: Spontaneous
  Country: FR (occurrence: FR)
  Receive Date: 20230327
  Receipt Date: 20230327
  Transmission Date: 20230417
  Serious: Yes (Other)
  Sender: FDA-Public Use
  Company Number: None

PATIENT
  Age: 39 Year
  Sex: Female
  Weight: 66 kg

DRUGS (1)
  1. MIRENA [Suspect]
     Active Substance: LEVONORGESTREL
     Indication: Hormonal contraception
     Dosage: 20?G/DAY
     Route: 015
     Dates: start: 20210615

REACTIONS (4)
  - Skin odour abnormal [Recovered/Resolved]
  - Depression [Not Recovered/Not Resolved]
  - Loss of libido [Recovered/Resolved]
  - Sensory loss [Recovering/Resolving]

NARRATIVE: CASE EVENT DATE: 20210701
